FAERS Safety Report 13331908 (Version 1)
Quarter: 2017Q1

REPORT INFORMATION
  Report Type: Spontaneous
  Country: US (occurrence: US)
  Receive Date: 20170314
  Receipt Date: 20170314
  Transmission Date: 20170428
  Serious: No
  Sender: FDA-Public Use
  Company Number: US-JNJFOC-20170203438

PATIENT
  Age: 87 Year
  Sex: Female
  Weight: 60.33 kg

DRUGS (4)
  1. TYLENOL 8HR [Suspect]
     Active Substance: ACETAMINOPHEN
     Route: 048
  2. TYLENOL 8HR [Suspect]
     Active Substance: ACETAMINOPHEN
     Indication: ARTHRALGIA
     Dosage: DAY 1 : 2 CAPLETS 3XTIMES??DAY 2,3 : 2 CAPLETS IN MORNING 4-5 HOURS, 2 CAPLETS 4-5 HOURS 2 CAPLETS
     Route: 048
  3. TYLENOL EXTRA STRENGTH [Suspect]
     Active Substance: ACETAMINOPHEN
     Indication: ARTHRALGIA
     Dosage: 3-4 X DAY
     Route: 048
  4. HYDROCODONE/ACETAMINOPHEN [Concomitant]
     Active Substance: ACETAMINOPHEN\HYDROCODONE
     Indication: ARTHRALGIA
     Dosage: 2-3 DAY, 2 YEARS
     Route: 065

REACTIONS (3)
  - Overdose [Unknown]
  - Drug ineffective [Unknown]
  - Drug administration error [Unknown]
